FAERS Safety Report 4890314-3 (Version None)
Quarter: 2005Q4

REPORT INFORMATION
  Report Type: 
  Country: None (occurrence: None)
  Receive Date: 20051216
  Receipt Date: 20050805
  Transmission Date: 20060501
  Serious: No
  Sender: FDA-Public Use
  Company Number: USA0508104754

PATIENT
  Age: 61 Year
  Sex: Male

DRUGS (5)
  1. CIALIS [Suspect]
     Indication: ERECTILE DYSFUNCTION
     Dosage: 20 MG
  2. HYZAAR [Concomitant]
  3. CLONIDINE [Concomitant]
  4. ATENOLOL [Concomitant]
  5. FLUOXETINE HYDROCHLORIDE [Concomitant]

REACTIONS (1)
  - THERAPEUTIC RESPONSE DECREASED [None]
